FAERS Safety Report 21332999 (Version 1)
Quarter: 2022Q3

REPORT INFORMATION
  Report Type: Spontaneous
  Country: US (occurrence: US)
  Receive Date: 20220914
  Receipt Date: 20220914
  Transmission Date: 20221027
  Serious: No
  Sender: FDA-Public Use
  Company Number: US-GILEAD-2022-0597490

PATIENT
  Sex: Female

DRUGS (4)
  1. SOFOSBUVIR\VELPATASVIR [Suspect]
     Active Substance: SOFOSBUVIR\VELPATASVIR
     Indication: Chronic hepatitis C
     Dosage: 1 DOSAGE FORM, QD FOR 12 WEEKS
     Route: 048
     Dates: end: 202208
  2. KEPPRA [Concomitant]
     Active Substance: LEVETIRACETAM
  3. ZONEGRAN [Concomitant]
     Active Substance: ZONISAMIDE
  4. IBUPROFEN [Concomitant]
     Active Substance: IBUPROFEN

REACTIONS (1)
  - Headache [Unknown]
